FAERS Safety Report 10207076 (Version 2)
Quarter: 2014Q2

REPORT INFORMATION
  Report Type: Report from Study
  Country: FR (occurrence: FR)
  Receive Date: 20140530
  Receipt Date: 20140530
  Transmission Date: 20141212
  Serious: Yes (Death, Hospitalization, Other)
  Sender: FDA-Public Use
  Company Number: PHHO2007FR18940

PATIENT
  Age: 54 Year
  Sex: Male
  Weight: 70 kg

DRUGS (1)
  1. EVEROLIMUS [Suspect]
     Indication: RENAL CANCER METASTATIC
     Dosage: 10 MG, UNK
     Route: 048
     Dates: start: 20070622, end: 20071113

REACTIONS (8)
  - Interstitial lung disease [Fatal]
  - Peak expiratory flow rate decreased [Fatal]
  - Obstructive airways disorder [Fatal]
  - Bleeding time prolonged [Fatal]
  - Dyspnoea [Fatal]
  - Performance status decreased [Fatal]
  - Acute respiratory failure [Fatal]
  - Malignant neoplasm progression [Fatal]
